FAERS Safety Report 15656635 (Version 3)
Quarter: 2021Q1

REPORT INFORMATION
  Report Type: Spontaneous
  Country: US (occurrence: US)
  Receive Date: 20181126
  Receipt Date: 20210311
  Transmission Date: 20210419
  Serious: Yes (Hospitalization, Other)
  Sender: FDA-Public Use
  Company Number: US-GILEAD-2018-0376156

PATIENT
  Age: 48 Year
  Sex: Female
  Weight: 53.52 kg

DRUGS (32)
  1. TRUVADA [Suspect]
     Active Substance: EMTRICITABINE\TENOFOVIR DISOPROXIL FUMARATE
     Indication: HIV INFECTION
     Dosage: UNK
     Route: 048
     Dates: start: 2004, end: 2005
  2. KLONOPIN [Concomitant]
     Active Substance: CLONAZEPAM
  3. HYDROMORPHONE [Concomitant]
     Active Substance: HYDROMORPHONE
  4. ALENDRONATE [Concomitant]
     Active Substance: ALENDRONATE SODIUM
  5. VALIUM [Concomitant]
     Active Substance: DIAZEPAM
  6. CLORAZEPATE [Concomitant]
     Active Substance: CLORAZEPATE DIPOTASSIUM
  7. ZOLPIDEM [Concomitant]
     Active Substance: ZOLPIDEM TARTRATE
  8. FOSAMAX [Concomitant]
     Active Substance: ALENDRONATE SODIUM
  9. MELOXICAM. [Concomitant]
     Active Substance: MELOXICAM
  10. TIZANIDINE. [Concomitant]
     Active Substance: TIZANIDINE
  11. VITAMIN D NOS [Concomitant]
     Active Substance: VITAMIN D NOS
  12. ATRIPLA [Suspect]
     Active Substance: EFAVIRENZ\EMTRICITABINE\TENOFOVIR DISOPROXIL FUMARATE
     Indication: HIV INFECTION
     Dosage: UNK
     Route: 048
     Dates: start: 2006, end: 20181203
  13. STRIBILD [Suspect]
     Active Substance: COBICISTAT\ELVITEGRAVIR\EMTRICITABINE\TENOFOVIR DISOPROXIL FUMARATE
     Indication: HIV INFECTION
     Dosage: UNK
     Route: 048
     Dates: start: 20160210, end: 20160713
  14. QUETIAPINE. [Concomitant]
     Active Substance: QUETIAPINE
  15. METOCLOPRAMIDE. [Concomitant]
     Active Substance: METOCLOPRAMIDE
  16. MIRTAZAPINE. [Concomitant]
     Active Substance: MIRTAZAPINE
  17. PROLIA [Concomitant]
     Active Substance: DENOSUMAB
  18. PREMARIN [Concomitant]
     Active Substance: ESTROGENS, CONJUGATED
  19. SEROQUEL [Concomitant]
     Active Substance: QUETIAPINE FUMARATE
  20. VENTOLIN HFA [Concomitant]
     Active Substance: ALBUTEROL SULFATE
  21. TRIUMEQ [Concomitant]
     Active Substance: ABACAVIR SULFATE\DOLUTEGRAVIR SODIUM\LAMIVUDINE
  22. MORPHINE SULFATE. [Concomitant]
     Active Substance: MORPHINE SULFATE
  23. AMOXICILLIN. [Concomitant]
     Active Substance: AMOXICILLIN
  24. ONDANSETRON [Concomitant]
     Active Substance: ONDANSETRON
  25. ESTRADIOL. [Concomitant]
     Active Substance: ESTRADIOL
  26. TERBINAFINE. [Concomitant]
     Active Substance: TERBINAFINE
  27. AMITIZA [Concomitant]
     Active Substance: LUBIPROSTONE
  28. CALCIUM [Concomitant]
     Active Substance: CALCIUM
  29. CALCIUM + VIT D [Concomitant]
     Active Substance: CALCIUM\VITAMIN D
  30. PROGESTERONE. [Concomitant]
     Active Substance: PROGESTERONE
  31. CEFDINIR. [Concomitant]
     Active Substance: CEFDINIR
  32. CHANTIX [Concomitant]
     Active Substance: VARENICLINE TARTRATE

REACTIONS (13)
  - Osteopenia [Not Recovered/Not Resolved]
  - Pain [Not Recovered/Not Resolved]
  - Anhedonia [Not Recovered/Not Resolved]
  - Osteoporosis [Not Recovered/Not Resolved]
  - Anxiety [Not Recovered/Not Resolved]
  - Femur fracture [Unknown]
  - Emotional distress [Not Recovered/Not Resolved]
  - Bone density decreased [Unknown]
  - Economic problem [Unknown]
  - Musculoskeletal disorder [Unknown]
  - Adverse drug reaction [Unknown]
  - Lower limb fracture [Recovered/Resolved]
  - Skeletal injury [Unknown]

NARRATIVE: CASE EVENT DATE: 2007
